FAERS Safety Report 23730414 (Version 2)
Quarter: 2024Q3

REPORT INFORMATION
  Report Type: Spontaneous
  Country: US (occurrence: US)
  Receive Date: 20240411
  Receipt Date: 20240710
  Transmission Date: 20241016
  Serious: No
  Sender: MANKIND PHARMA
  Company Number: US-MankindUS-000137

PATIENT
  Age: 6 Year
  Sex: Female
  Weight: 22.68 kg

DRUGS (1)
  1. NITROFURANTOIN [Suspect]
     Active Substance: NITROFURANTOIN
     Indication: Prophylaxis
     Dosage: STRENGTH: 50MG
     Dates: start: 202311

REACTIONS (7)
  - Product physical issue [Unknown]
  - Wrong technique in product usage process [Unknown]
  - Vesicoureteric reflux [Unknown]
  - Product availability issue [Unknown]
  - Therapeutic response changed [Unknown]
  - Product substitution issue [Unknown]
  - Urinary tract infection [Recovered/Resolved]

NARRATIVE: CASE EVENT DATE: 20240120
